FAERS Safety Report 10052151 (Version 1)
Quarter: 2014Q2

REPORT INFORMATION
  Report Type: Spontaneous
  Country: GB (occurrence: GB)
  Receive Date: 20140402
  Receipt Date: 20140402
  Transmission Date: 20141212
  Serious: Yes (Other)
  Sender: FDA-Public Use
  Company Number: GB-ROCHE-1373014

PATIENT
  Sex: Female

DRUGS (2)
  1. MABTHERA [Suspect]
     Indication: GLOMERULONEPHRITIS MINIMAL LESION
     Route: 065
  2. PREDNISOLONE [Concomitant]

REACTIONS (1)
  - B-lymphocyte count decreased [Unknown]
